FAERS Safety Report 9304094 (Version 3)
Quarter: 2014Q1

REPORT INFORMATION
  Report Type: Spontaneous
  Country: US (occurrence: US)
  Receive Date: 20130522
  Receipt Date: 20140219
  Transmission Date: 20141002
  Serious: Yes (Death, Hospitalization)
  Sender: FDA-Public Use
  Company Number: US-B.I. PHARMACEUTICALS,INC./RIDGEFIELD-2013-BI-14413BP

PATIENT
  Age: 74 Year
  Sex: Male
  Weight: 90.72 kg

DRUGS (5)
  1. PRADAXA [Suspect]
     Indication: ANTICOAGULANT THERAPY
     Dates: start: 20110608, end: 20110713
  2. UROXATRAL [Concomitant]
  3. METOPROLOL [Concomitant]
  4. HYDROCHLOROTHIAZIDE [Concomitant]
  5. LIPITOR [Concomitant]

REACTIONS (6)
  - Myocardial infarction [Fatal]
  - Cardio-respiratory arrest [Fatal]
  - Ventricular fibrillation [Fatal]
  - Acute respiratory failure [Fatal]
  - Grand mal convulsion [Fatal]
  - Brain injury [Fatal]
